FAERS Safety Report 16578238 (Version 1)
Quarter: 2019Q3

REPORT INFORMATION
  Report Type: Spontaneous
  Country: DE (occurrence: DE)
  Receive Date: 20190716
  Receipt Date: 20190716
  Transmission Date: 20191004
  Serious: Yes (Hospitalization)
  Sender: FDA-Public Use
  Company Number: DE-TEVA-2019-DE-1076645

PATIENT
  Age: 70 Year
  Sex: Male
  Weight: 150 kg

DRUGS (10)
  1. IBUPROFEN. [Concomitant]
     Active Substance: IBUPROFEN
     Dosage: 600 MG, 1-1-1-0
     Route: 065
  2. METHOTREXAT [Concomitant]
     Active Substance: METHOTREXATE
     Dosage: 10 MG, 1X / WEEK
     Route: 065
  3. NITROLINGUAL [Concomitant]
     Active Substance: NITROGLYCERIN
     Dosage: NK MG, NEED
     Route: 065
  4. NITRENDIPIN [Concomitant]
     Active Substance: NITRENDIPINE
     Dosage: 10 MG, NEED
     Route: 065
  5. NORPROLAC [Concomitant]
     Active Substance: QUINAGOLIDE HYDROCHLORIDE
     Dosage: 150 MG, 1-0-0-0
     Route: 065
  6. VOCADO HCT [Suspect]
     Active Substance: AMLODIPINE BESYLATE\HYDROCHLOROTHIAZIDE\OLMESARTAN MEDOXOMIL
     Dosage: 40|10|12.5 MG, 1-0-1-0
     Route: 065
  7. OMEPRAZOL [Concomitant]
     Active Substance: OMEPRAZOLE
     Dosage: 20 MG, 1-0-0-0
     Route: 065
  8. ASS 100 [Concomitant]
     Active Substance: ASPIRIN
     Dosage: 100 MG, 1-0-0-0
     Route: 065
  9. VELMETIA 50MG/1000MG [Concomitant]
     Dosage: 50|1000 MG, 1-0-1-0
     Route: 065
  10. METOPROLOL. [Suspect]
     Active Substance: METOPROLOL
     Dosage: 50 MG, 1-0-0-0
     Route: 065

REACTIONS (4)
  - Bradycardia [Unknown]
  - Nausea [Unknown]
  - Cold sweat [Unknown]
  - Asthenia [Unknown]
